FAERS Safety Report 13215862 (Version 4)
Quarter: 2018Q1

REPORT INFORMATION
  Report Type: Spontaneous
  Country: US (occurrence: US)
  Receive Date: 20170209
  Receipt Date: 20180326
  Transmission Date: 20180508
  Serious: Yes (Disabling, Other)
  Sender: FDA-Public Use
  Company Number: US-REGENERON PHARMACEUTICALS, INC.-2017-11521

PATIENT

DRUGS (7)
  1. AVASTIN [Suspect]
     Active Substance: BEVACIZUMAB
     Indication: PRODUCT USED FOR UNKNOWN INDICATION
     Dosage: RIGHT EYE
     Route: 031
  2. DYAZIDE [Concomitant]
     Active Substance: HYDROCHLOROTHIAZIDE\TRIAMTERENE
     Indication: PRODUCT USED FOR UNKNOWN INDICATION
     Dosage: UNK
  3. EYLEA [Suspect]
     Active Substance: AFLIBERCEPT
     Indication: PRODUCT USED FOR UNKNOWN INDICATION
     Dosage: RIGHT EYE (OD)
     Route: 031
     Dates: start: 20161007, end: 20161216
  4. BABY ASPIRIN [Concomitant]
     Active Substance: ASPIRIN
     Indication: PRODUCT USED FOR UNKNOWN INDICATION
     Dosage: UNK
  5. PRESERVISION [Concomitant]
     Active Substance: MINERALS\VITAMINS
     Indication: PRODUCT USED FOR UNKNOWN INDICATION
  6. CENTRUM SILVER                     /02363801/ [Concomitant]
     Active Substance: MINERALS\VITAMINS
     Indication: PRODUCT USED FOR UNKNOWN INDICATION
  7. AVASTIN [Suspect]
     Active Substance: BEVACIZUMAB
     Dosage: RIGHT EYE
     Route: 031
     Dates: start: 20161216, end: 20161216

REACTIONS (5)
  - Blindness transient [Recovered/Resolved]
  - Vision blurred [Recovered/Resolved]
  - Abnormal sensation in eye [Recovered/Resolved]
  - Injection site swelling [Recovered/Resolved]
  - Malaise [Recovered/Resolved]

NARRATIVE: CASE EVENT DATE: 201609
